FAERS Safety Report 5512802-9 (Version None)
Quarter: 2007Q4

REPORT INFORMATION
  Report Type: 
  Country: None (occurrence: None)
  Receive Date: 20071108
  Receipt Date: 20071030
  Transmission Date: 20080405
  Serious: Yes (Hospitalization)
  Sender: FDA-Public Use
  Company Number: JPI-P-002382

PATIENT
  Age: 63 Year
  Sex: Female

DRUGS (17)
  1. XYREM [Suspect]
     Indication: NARCOLEPSY
     Dosage: SEE IMAGE
     Route: 048
  2. XYREM [Suspect]
     Indication: NARCOLEPSY
     Dosage: SEE IMAGE
     Route: 048
  3. XYREM [Suspect]
     Indication: NARCOLEPSY
     Dosage: SEE IMAGE
     Route: 048
     Dates: start: 20070912
  4. XYREM [Suspect]
     Indication: NARCOLEPSY
     Dosage: SEE IMAGE
     Route: 048
     Dates: start: 20071001
  5. OXYCODONE HCL [Suspect]
     Indication: DRUG USE FOR UNKNOWN INDICATION
     Dosage: (40 MG, Q8HRS)
     Dates: start: 20070701
  6. CLONAZEPAM [Concomitant]
  7. THYROID TAB [Concomitant]
  8. BUPROPION HCL [Concomitant]
  9. B12 (CYANOCOBALAMIN-TANNIN COMPLEX) [Concomitant]
  10. PANTOPRAZOLE SODIUM [Concomitant]
  11. TYLENOL [Concomitant]
  12. ASPIRIN [Concomitant]
  13. MULTIVITAMIN (MULTIVITAMIN /00831701/) [Concomitant]
  14. FLAXSEED OIL (LINUM USITATISSIMUM SEED OIL) [Concomitant]
  15. ASCORBIC ACID [Concomitant]
  16. ESTRACE/TESTOSTERONE (ESTROGEN W/TESTOSTERONE) [Concomitant]
  17. BIOTIN [Concomitant]

REACTIONS (10)
  - ABNORMAL BEHAVIOUR [None]
  - CRYING [None]
  - DEPRESSION [None]
  - DRUG DEPENDENCE [None]
  - EMOTIONAL DISORDER [None]
  - NAUSEA [None]
  - PAIN [None]
  - PANIC ATTACK [None]
  - PYREXIA [None]
  - VOMITING [None]
